FAERS Safety Report 4543627-9 (Version None)
Quarter: 2005Q1

REPORT INFORMATION
  Report Type: 
  Country: None (occurrence: None)
  Receive Date: 20050103
  Receipt Date: 20041224
  Transmission Date: 20050727
  Serious: Yes (Other)
  Sender: FDA-Public Use
  Company Number: 200415887BCC

PATIENT
  Age: 50 Year
  Sex: Female

DRUGS (2)
  1. LAMICTAL [Suspect]
  2. ALEVE [Suspect]
     Indication: BACK PAIN
     Route: 048
     Dates: start: 20041205, end: 20041205

REACTIONS (5)
  - APHASIA [None]
  - CONVULSION [None]
  - DRUG INTERACTION [None]
  - DYSKINESIA [None]
  - EYE MOVEMENT DISORDER [None]
